FAERS Safety Report 9487051 (Version 2)
Quarter: 2013Q3

REPORT INFORMATION
  Report Type: Report from Study
  Country: DK (occurrence: DK)
  Receive Date: 20130829
  Receipt Date: 20130829
  Transmission Date: 20140515
  Serious: Yes (Hospitalization)
  Sender: FDA-Public Use
  Company Number: PHHO2010DK11820

PATIENT
  Age: 69 Year
  Sex: Female
  Weight: 65 kg

DRUGS (8)
  1. ALISKIREN [Suspect]
     Indication: CARDIOVASCULAR DISORDER
     Dosage: UNK
     Route: 048
     Dates: start: 20081118, end: 20100716
  2. FUROSEMID [Concomitant]
  3. GLIMEPIRIDE [Concomitant]
  4. FELODIPINE [Concomitant]
  5. METFORMIN [Concomitant]
  6. ASASANTIN [Concomitant]
  7. SIMVASTATIN [Concomitant]
  8. ENALAPRIL [Concomitant]

REACTIONS (4)
  - Dehydration [Unknown]
  - Hyperkalaemia [Recovered/Resolved]
  - Blood creatinine increased [Recovered/Resolved]
  - Haemoglobin decreased [Unknown]
